FAERS Safety Report 23725727 (Version 1)
Quarter: 2024Q2

REPORT INFORMATION
  Report Type: Spontaneous
  Country: US (occurrence: US)
  Receive Date: 20240410
  Receipt Date: 20240410
  Transmission Date: 20240716
  Serious: Yes (Other)
  Sender: FDA-Public Use
  Company Number: US-MLMSERVICE-20240328-4918923-1

PATIENT
  Age: 25 Year
  Sex: Female

DRUGS (1)
  1. TESTOSTERONE [Suspect]
     Active Substance: TESTOSTERONE
     Indication: Gender reassignment therapy
     Dosage: 60 MILLIGRAM, EVERY WEEK
     Route: 065

REACTIONS (2)
  - Atrioventricular block first degree [Recovered/Resolved]
  - Myopericarditis [Recovered/Resolved]
